FAERS Safety Report 16851158 (Version 1)
Quarter: 2019Q3

REPORT INFORMATION
  Report Type: Spontaneous
  Country: RU (occurrence: RU)
  Receive Date: 20190925
  Receipt Date: 20190925
  Transmission Date: 20191005
  Serious: Yes (Life-Threatening)
  Sender: FDA-Public Use
  Company Number: RU-BAYER-2019-168634

PATIENT
  Age: 40 Year
  Sex: Female

DRUGS (1)
  1. QLAIRA [Suspect]
     Active Substance: DIENOGEST\ESTRADIOL VALERATE
     Dosage: 1 DF, QD
     Route: 048
     Dates: start: 201812

REACTIONS (4)
  - Oedema peripheral [Not Recovered/Not Resolved]
  - Product quality issue [None]
  - Headache [Recovered/Resolved]
  - Suspected counterfeit product [None]
